FAERS Safety Report 24766932 (Version 1)
Quarter: 2024Q4

REPORT INFORMATION
  Report Type: Spontaneous
  Country: US (occurrence: US)
  Receive Date: 20241223
  Receipt Date: 20241223
  Transmission Date: 20250115
  Serious: No
  Sender: SANOFI AVENTIS
  Company Number: US-SA-2024SA375802

PATIENT
  Age: 39 Year
  Sex: Female

DRUGS (3)
  1. DUPIXENT [Suspect]
     Active Substance: DUPILUMAB
     Indication: Asthma
     Dosage: 300 MG, QOW
     Route: 058
     Dates: start: 202304
  2. ALBUTEROL [Suspect]
     Active Substance: ALBUTEROL
     Dosage: UNK
  3. BUDESONIDE [Suspect]
     Active Substance: BUDESONIDE
     Dosage: UNK

REACTIONS (2)
  - Asthma [Unknown]
  - Drug hypersensitivity [Unknown]
